FAERS Safety Report 24803017 (Version 2)
Quarter: 2025Q1

REPORT INFORMATION
  Report Type: Spontaneous
  Country: GB (occurrence: GB)
  Receive Date: 20250103
  Receipt Date: 20250123
  Transmission Date: 20250409
  Serious: Yes (Life-Threatening, Hospitalization, Other)
  Sender: CHEPLAPHARM
  Company Number: GB-MYLANLABS-2024M1099197

PATIENT
  Age: 47 Year
  Sex: Female

DRUGS (3)
  1. OLANZAPINE [Suspect]
     Active Substance: OLANZAPINE
     Indication: Product used for unknown indication
     Dosage: DAILY DOSE: 20 MILLIGRAM
  2. CLOZARIL [Suspect]
     Active Substance: CLOZAPINE
     Indication: Schizoaffective disorder
     Dates: start: 20180829, end: 202410
  3. CLOZARIL [Suspect]
     Active Substance: CLOZAPINE
     Indication: Schizoaffective disorder
     Dates: start: 20250114

REACTIONS (13)
  - Agranulocytosis [Unknown]
  - Mental impairment [Unknown]
  - Affect lability [Unknown]
  - Irritability [Unknown]
  - Poor quality sleep [Unknown]
  - Thinking abnormal [Unknown]
  - Pressure of speech [Unknown]
  - Delusion of grandeur [Unknown]
  - Aggression [Unknown]
  - Chest pain [Unknown]
  - Eosinophil count decreased [Not Recovered/Not Resolved]
  - Haemoglobin decreased [Recovering/Resolving]
  - Neutrophil count decreased [Recovered/Resolved]

NARRATIVE: CASE EVENT DATE: 20241022
